FAERS Safety Report 12938393 (Version 1)
Quarter: 2016Q4

REPORT INFORMATION
  Report Type: Spontaneous
  Country: US (occurrence: US)
  Receive Date: 20161114
  Receipt Date: 20161114
  Transmission Date: 20170207
  Serious: No
  Sender: FDA-Public Use
  Company Number: None

PATIENT
  Age: 57 Year
  Sex: Female
  Weight: 80.55 kg

DRUGS (2)
  1. BREO ELLIPTA [Suspect]
     Active Substance: FLUTICASONE FUROATE\VILANTEROL TRIFENATATE
     Indication: ASTHMA
     Dosage: RESPIRATORY (INHALATION) 1 PUFF(S)
     Route: 055
     Dates: start: 20161104, end: 20161111
  2. SPIRIVA RESPIMAT [Suspect]
     Active Substance: TIOTROPIUM BROMIDE
     Indication: ASTHMA
     Dosage: RESPIRATORY (INHALATION) 2 PUFF(S)
     Route: 055
     Dates: start: 20161104, end: 20161111

REACTIONS (4)
  - Nightmare [None]
  - Restlessness [None]
  - Sleep disorder [None]
  - Headache [None]

NARRATIVE: CASE EVENT DATE: 20161104
